FAERS Safety Report 5313600-1 (Version None)
Quarter: 2007Q2

REPORT INFORMATION
  Report Type: 
  Country: None (occurrence: None)
  Receive Date: 20070425
  Receipt Date: 20070409
  Transmission Date: 20071010
  Serious: Yes (Hospitalization, Other)
  Sender: FDA-Public Use
  Company Number: L07-GER-01585-01

PATIENT
  Age: 54 Year
  Sex: Female

DRUGS (5)
  1. CARBAMAZEPINE [Suspect]
     Indication: CONVULSION PROPHYLAXIS
     Dosage: 200 MG
  2. CARBAMAZEPINE [Suspect]
     Indication: DRUG WITHDRAWAL CONVULSIONS
     Dosage: 200 MG
  3. CARBAMAZEPINE [Suspect]
     Indication: CONVULSION PROPHYLAXIS
     Dosage: 600 MG
  4. CARBAMAZEPINE [Suspect]
     Indication: DRUG WITHDRAWAL CONVULSIONS
     Dosage: 600 MG
  5. DIAZEPAM [Concomitant]

REACTIONS (7)
  - DISORIENTATION [None]
  - GRAND MAL CONVULSION [None]
  - HEPATIC STEATOSIS [None]
  - HYPONATRAEMIA [None]
  - RENAL CYST [None]
  - RENAL IMPAIRMENT [None]
  - SUICIDAL IDEATION [None]
